FAERS Safety Report 14150166 (Version 1)
Quarter: 2017Q4

REPORT INFORMATION
  Report Type: Report from Study
  Country: JP (occurrence: JP)
  Receive Date: 20171101
  Receipt Date: 20171101
  Transmission Date: 20180321
  Serious: Yes (Hospitalization, Other)
  Sender: FDA-Public Use
  Company Number: JP-ARIAD PHARMACEUTICALS, INC-2017JP008299

PATIENT
  Age: 58 Year
  Sex: Male
  Weight: 55.4 kg

DRUGS (9)
  1. ICLUSIG [Suspect]
     Active Substance: PONATINIB
     Indication: ACUTE LYMPHOCYTIC LEUKAEMIA
     Dosage: 15 MG, DAILY DOSE
     Route: 048
     Dates: start: 20170425, end: 20170501
  2. ICLUSIG [Suspect]
     Active Substance: PONATINIB
     Dosage: 15 MG, DAILY DOSE
     Route: 048
     Dates: start: 20170525, end: 20170525
  3. ICLUSIG [Suspect]
     Active Substance: PONATINIB
     Dosage: 30 MG, DAILY DOSE
     Route: 048
     Dates: start: 20170718
  4. ICLUSIG [Suspect]
     Active Substance: PONATINIB
     Dosage: 15 MG, DAILY DOSE
     Route: 048
     Dates: start: 20170614, end: 20170614
  5. VORICONAZOLE. [Interacting]
     Active Substance: VORICONAZOLE
     Indication: PRODUCT USED FOR UNKNOWN INDICATION
     Dosage: 100 MG, DAILY DOSE
     Route: 048
     Dates: start: 20161101, end: 20170501
  6. ICLUSIG [Suspect]
     Active Substance: PONATINIB
     Dosage: 15 MG, DAILY DOSE
     Route: 048
     Dates: start: 20170616, end: 20170616
  7. ICLUSIG [Suspect]
     Active Substance: PONATINIB
     Dosage: 15 MG, DAILY DOSE
     Route: 048
     Dates: start: 20170618, end: 20170618
  8. VFEND [Interacting]
     Active Substance: VORICONAZOLE
     Indication: PROPHYLAXIS
     Dosage: 100 MG, DAILY DOSE
     Route: 048
     Dates: start: 20161101, end: 20170501
  9. ICLUSIG [Suspect]
     Active Substance: PONATINIB
     Dosage: 15 MG, DAILY DOSE
     Route: 048
     Dates: start: 20170620, end: 20170703

REACTIONS (3)
  - Herpes zoster [Recovered/Resolved]
  - Liver disorder [Recovered/Resolved]
  - Drug interaction [Unknown]

NARRATIVE: CASE EVENT DATE: 20170501
